FAERS Safety Report 7825466-6 (Version None)
Quarter: 2011Q4

REPORT INFORMATION
  Report Type: 
  Country: None (occurrence: None)
  Receive Date: 20111019
  Receipt Date: 20111005
  Transmission Date: 20120403
  Serious: Yes (Hospitalization)
  Sender: FDA-Public Use
  Company Number: US-ROCHE-1002602

PATIENT
  Sex: Male

DRUGS (4)
  1. PACLITAXEL [Suspect]
     Indication: BLADDER CANCER
     Dosage: OVER 1 HR ON DAYS 1, 8, 15, 22, 29, 36, AND 43
  2. ENOXAPARIN SODIUM [Suspect]
     Indication: PRODUCT USED FOR UNKNOWN INDICATION
     Dates: end: 20100623
  3. HERCEPTIN [Suspect]
     Indication: BLADDER CANCER
     Dosage: OVER 90 MINUTES ON DAY 1 ONLY
     Route: 042
  4. HERCEPTIN [Suspect]
     Dosage: OVER 30 MINUTES ON DAYS 8, 15, 22, 29, 36, AND 43
     Route: 042
     Dates: end: 20100707

REACTIONS (3)
  - HYPONATRAEMIA [None]
  - DIARRHOEA [None]
  - HAEMATOMA [None]
